FAERS Safety Report 10302069 (Version 1)
Quarter: 2014Q3

REPORT INFORMATION
  Report Type: Spontaneous
  Country: GB (occurrence: None)
  Receive Date: 20140709
  Receipt Date: 20140709
  Transmission Date: 20150326
  Serious: Yes (Other)
  Sender: FDA-Public Use
  Company Number: AUR-APL-2014-07150

PATIENT
  Age: 5 Year
  Sex: Male
  Weight: 25 kg

DRUGS (5)
  1. MONTELUKAST [Suspect]
     Active Substance: MONTELUKAST SODIUM
     Indication: PRODUCT USED FOR UNKNOWN INDICATION
  2. CLENIL MODULITE (BECLOMETASONE DIPROPIONATE) [Concomitant]
  3. TERBINAFINE (TERBINAFINE) [Concomitant]
     Active Substance: TERBINAFINE
  4. AMOXICILLIN (AMOXICILLIN) [Concomitant]
     Active Substance: AMOXICILLIN
  5. FLUCLOXACILLIN (FLUCLOXACILLIN) [Concomitant]
     Active Substance: FLUCLOXACILLIN

REACTIONS (4)
  - Nightmare [None]
  - Decreased appetite [None]
  - Abnormal behaviour [None]
  - Insomnia [None]

NARRATIVE: CASE EVENT DATE: 20140514
